FAERS Safety Report 6713702-9 (Version None)
Quarter: 2010Q2

REPORT INFORMATION
  Report Type: 
  Country: None (occurrence: None)
  Receive Date: 20100506
  Receipt Date: 20100424
  Transmission Date: 20101027
  Serious: Yes (Death, Other)
  Sender: FDA-Public Use
  Company Number: CN-PFIZER INC-2010051962

PATIENT

DRUGS (1)
  1. VFEND [Suspect]

REACTIONS (2)
  - CARDIAC FAILURE [None]
  - DRUG INTERACTION [None]
